FAERS Safety Report 10633324 (Version 1)
Quarter: 2014Q4

REPORT INFORMATION
  Report Type: Spontaneous
  Country: US (occurrence: US)
  Receive Date: 20141205
  Receipt Date: 20141205
  Transmission Date: 20150529
  Serious: No
  Sender: FDA-Public Use
  Company Number: US-BRISTOL-MYERS SQUIBB COMPANY-21574918

PATIENT
  Age: 55 Year
  Sex: Female
  Weight: 76.19 kg

DRUGS (10)
  1. ORENCIA [Suspect]
     Active Substance: ABATACEPT
     Indication: RHEUMATOID ARTHRITIS
     Dosage: STOP:APR2014
     Route: 058
     Dates: start: 201309
  2. LOSARTAN [Concomitant]
     Active Substance: LOSARTAN
  3. MVI [Concomitant]
     Active Substance: VITAMINS
  4. OMEPRAZOLE. [Concomitant]
     Active Substance: OMEPRAZOLE
  5. CALCIUM [Concomitant]
     Active Substance: CALCIUM
  6. LEVEMIR [Concomitant]
     Active Substance: INSULIN DETEMIR
  7. VITAMIN D3 [Concomitant]
     Active Substance: CHOLECALCIFEROL
  8. SPIRONOLACTONE. [Concomitant]
     Active Substance: SPIRONOLACTONE
  9. PREDNISONE. [Concomitant]
     Active Substance: PREDNISONE
  10. CARVEDILOL. [Concomitant]
     Active Substance: CARVEDILOL

REACTIONS (1)
  - Pyoderma gangrenosum [Unknown]
